FAERS Safety Report 18433697 (Version 1)
Quarter: 2020Q4

REPORT INFORMATION
  Report Type: Spontaneous
  Country: CA (occurrence: CA)
  Receive Date: 20201028
  Receipt Date: 20201028
  Transmission Date: 20210114
  Serious: Yes (Disabling, Other)
  Sender: FDA-Public Use
  Company Number: CA-ADVANZ PHARMA-202010009641

PATIENT

DRUGS (10)
  1. CIMZIA [Concomitant]
     Active Substance: CERTOLIZUMAB PEGOL
     Dosage: UNK
  2. ENBREL [Concomitant]
     Active Substance: ETANERCEPT
     Dosage: UNK
  3. HYDROXYCHLOROQUINE [Suspect]
     Active Substance: HYDROXYCHLOROQUINE
     Indication: PRODUCT USED FOR UNKNOWN INDICATION
     Dosage: 400 MG, QD (PLAQUENIL)
     Route: 065
  4. ORENCIA [Concomitant]
     Active Substance: ABATACEPT
     Dosage: UNK
  5. AZATHLOPRLNE [Concomitant]
     Dosage: UNK
  6. SULFASALAZINE. [Concomitant]
     Active Substance: SULFASALAZINE
     Dosage: UNK
  7. METHOTREXATE. [Concomitant]
     Active Substance: METHOTREXATE
     Indication: RHEUMATOID ARTHRITIS
     Dosage: UNK
  8. ACTEMRA [Concomitant]
     Active Substance: TOCILIZUMAB
     Dosage: UNK
  9. PREDNISONE. [Concomitant]
     Active Substance: PREDNISONE
     Dosage: UNK
     Dates: start: 2019
  10. XELJANZ [Concomitant]
     Active Substance: TOFACITINIB CITRATE
     Indication: RHEUMATOID ARTHRITIS
     Dosage: UNK
     Dates: start: 20190410, end: 201906

REACTIONS (10)
  - Intestinal obstruction [Unknown]
  - Abdominal discomfort [Not Recovered/Not Resolved]
  - Chest pain [Unknown]
  - Drug ineffective [Unknown]
  - Cholelithiasis [Not Recovered/Not Resolved]
  - Muscle strain [Unknown]
  - Eye infection [Unknown]
  - Chest discomfort [Unknown]
  - Physical disability [Not Recovered/Not Resolved]
  - Ocular toxicity [Unknown]

NARRATIVE: CASE EVENT DATE: 2019
